FAERS Safety Report 9443447 (Version 1)
Quarter: 2013Q3

REPORT INFORMATION
  Report Type: Report from Study
  Country: AU (occurrence: AU)
  Receive Date: 20130806
  Receipt Date: 20130806
  Transmission Date: 20140515
  Serious: Yes (Other)
  Sender: FDA-Public Use
  Company Number: PHHY2011AU109587

PATIENT
  Age: 42 Year
  Sex: Male
  Weight: 130 kg

DRUGS (6)
  1. CLOZARIL [Suspect]
     Indication: SCHIZOPHRENIA
     Dosage: 175 MG,
     Route: 048
     Dates: start: 20070428
  2. CLOZARIL [Suspect]
     Dosage: UNK
     Dates: start: 201110
  3. CLOZARIL [Suspect]
     Dosage: 200 MG, QD
     Route: 048
     Dates: start: 2011, end: 20111115
  4. CLOZARIL [Suspect]
     Dosage: 200 MG, QD
     Route: 048
     Dates: start: 201201
  5. METFORMIN [Concomitant]
     Indication: DIABETES MELLITUS
     Dosage: 500 MG, DAILY
     Route: 048
  6. FLUPENTIXOL [Concomitant]
     Dosage: UKN, QHS
     Route: 030

REACTIONS (13)
  - Troponin increased [Recovered/Resolved]
  - Eosinophil count increased [Recovering/Resolving]
  - Mental impairment [Unknown]
  - Bundle branch block right [Not Recovered/Not Resolved]
  - Blood glucose increased [Not Recovered/Not Resolved]
  - C-reactive protein increased [Recovering/Resolving]
  - Alanine aminotransferase increased [Not Recovered/Not Resolved]
  - Aspartate aminotransferase increased [Not Recovered/Not Resolved]
  - Sinus tachycardia [Not Recovered/Not Resolved]
  - White blood cell count increased [Not Recovered/Not Resolved]
  - Neutrophil count increased [Not Recovered/Not Resolved]
  - Lymphocyte count increased [Not Recovered/Not Resolved]
  - Antipsychotic drug level decreased [Not Recovered/Not Resolved]
